FAERS Safety Report 21072018 (Version 1)
Quarter: 2022Q3

REPORT INFORMATION
  Report Type: Spontaneous
  Country: US (occurrence: None)
  Receive Date: 20220712
  Receipt Date: 20220712
  Transmission Date: 20221027
  Serious: Yes (Hospitalization)
  Sender: FDA-Public Use
  Company Number: None

PATIENT
  Age: 59 Year
  Sex: Female

DRUGS (1)
  1. CAPECITABINE [Suspect]
     Active Substance: CAPECITABINE
     Dosage: 1500MG  OTHER  ORAL
     Route: 048

REACTIONS (6)
  - Palmar-plantar erythrodysaesthesia syndrome [None]
  - Panic attack [None]
  - Chest discomfort [None]
  - Heart rate increased [None]
  - Carotid artery occlusion [None]
  - Blood pressure increased [None]

NARRATIVE: CASE EVENT DATE: 20220712
